FAERS Safety Report 16467129 (Version 1)
Quarter: 2019Q2

REPORT INFORMATION
  Report Type: Spontaneous
  Country: GB (occurrence: GB)
  Receive Date: 20190624
  Receipt Date: 20190624
  Transmission Date: 20190711
  Serious: Yes (Other)
  Sender: FDA-Public Use
  Company Number: GB-TEVA-2019-GB-1067146

PATIENT
  Age: 33 Year
  Sex: Female
  Weight: 90.71 kg

DRUGS (4)
  1. RISPERIDONE. [Concomitant]
     Active Substance: RISPERIDONE
  2. VENLAFAXINE HYDROCHLORIDE. [Concomitant]
     Active Substance: VENLAFAXINE HYDROCHLORIDE
  3. MIRTAZAPINE. [Suspect]
     Active Substance: MIRTAZAPINE
     Route: 048
     Dates: start: 20181110
  4. MIRTAZAPINE. [Suspect]
     Active Substance: MIRTAZAPINE
     Route: 048
     Dates: end: 20190501

REACTIONS (1)
  - Weight loss poor [Recovering/Resolving]

NARRATIVE: CASE EVENT DATE: 20181215
